FAERS Safety Report 9674646 (Version 4)
Quarter: 2013Q4

REPORT INFORMATION
  Report Type: Spontaneous
  Country: US (occurrence: US)
  Receive Date: 20131107
  Receipt Date: 20131216
  Transmission Date: 20140711
  Serious: No
  Sender: FDA-Public Use
  Company Number: US-JNJFOC-20131017320

PATIENT
  Sex: Female
  Weight: 86.18 kg

DRUGS (3)
  1. DURAGESIC [Suspect]
     Indication: FIBROMYALGIA
     Route: 062
     Dates: start: 20120720
  2. DURAGESIC [Suspect]
     Indication: SYSTEMIC LUPUS ERYTHEMATOSUS
     Route: 062
     Dates: start: 20120720
  3. DURAGESIC [Suspect]
     Indication: PAIN
     Route: 062
     Dates: start: 20120720

REACTIONS (4)
  - Expired drug administered [Unknown]
  - Product adhesion issue [Unknown]
  - Product quality issue [Unknown]
  - Wrong technique in drug usage process [Unknown]
